FAERS Safety Report 7076401-2 (Version None)
Quarter: 2010Q4

REPORT INFORMATION
  Report Type: 
  Country: None (occurrence: None)
  Receive Date: 20101101
  Receipt Date: 20101021
  Transmission Date: 20110411
  Serious: Yes (Other)
  Sender: FDA-Public Use
  Company Number: PR-JNJFOC-20101006174

PATIENT

DRUGS (1)
  1. REMICADE [Suspect]
     Indication: ILL-DEFINED DISORDER
     Route: 042

REACTIONS (1)
  - EOSINOPHILIC COLITIS [None]
